FAERS Safety Report 11133252 (Version 2)
Quarter: 2015Q3

REPORT INFORMATION
  Report Type: Report from Study
  Country: TW (occurrence: TW)
  Receive Date: 20150522
  Receipt Date: 20150804
  Transmission Date: 20151125
  Serious: Yes (Hospitalization, Other)
  Sender: FDA-Public Use
  Company Number: PHHY2015TW004099

PATIENT
  Age: 73 Year
  Sex: Male
  Weight: 59.3 kg

DRUGS (3)
  1. AMN107 [Suspect]
     Active Substance: NILOTINIB
     Indication: CHRONIC MYELOID LEUKAEMIA
     Dosage: 300 MG, BID
     Route: 048
     Dates: start: 20130827
  2. POTASSIUM CHLORIDE. [Concomitant]
     Active Substance: POTASSIUM CHLORIDE
     Indication: PRODUCT USED FOR UNKNOWN INDICATION
     Dosage: 600 MG, UNK
     Route: 048
     Dates: start: 20130923, end: 20131216
  3. ACETAMINOPHEN. [Concomitant]
     Active Substance: ACETAMINOPHEN
     Indication: PRODUCT USED FOR UNKNOWN INDICATION
     Dosage: 500 MG, UNK
     Route: 048
     Dates: start: 20150104, end: 20150117

REACTIONS (18)
  - Vision blurred [Unknown]
  - Procedural anxiety [Unknown]
  - Cyst [Unknown]
  - Laceration [Recovered/Resolved]
  - Spinal osteoarthritis [Recovering/Resolving]
  - Peripheral swelling [Unknown]
  - Contusion [Unknown]
  - Epistaxis [Unknown]
  - Facial bones fracture [Recovered/Resolved]
  - Swelling face [Unknown]
  - Skin abrasion [Recovered/Resolved]
  - Jaw fracture [Recovered/Resolved]
  - Road traffic accident [Unknown]
  - Paranasal sinus haematoma [Unknown]
  - Eye pain [Unknown]
  - Eye swelling [Unknown]
  - Traumatic fracture [Unknown]
  - Dysuria [Unknown]

NARRATIVE: CASE EVENT DATE: 20150103
